FAERS Safety Report 9493029 (Version 1)
Quarter: 2013Q3

REPORT INFORMATION
  Report Type: Spontaneous
  Country: CN (occurrence: CN)
  Receive Date: 20130902
  Receipt Date: 20130902
  Transmission Date: 20140515
  Serious: Yes (Other)
  Sender: FDA-Public Use
  Company Number: CN-ABBOTT-13X-035-1140231-00

PATIENT
  Age: 19 Year
  Sex: Male

DRUGS (2)
  1. DEPAKINE CHRONO [Suspect]
     Indication: PETIT MAL EPILEPSY
     Dosage: EXTENDED RELEASE; 500 MILLIGRAM(S); TWICE A DAY
     Route: 048
     Dates: start: 200910, end: 2011
  2. DEPAKINE CHRONO [Suspect]
     Dosage: EXTENDED RELEASE
     Route: 048
     Dates: start: 2011

REACTIONS (11)
  - Grand mal convulsion [Not Recovered/Not Resolved]
  - Convulsion [Unknown]
  - Eye movement disorder [Unknown]
  - Foaming at mouth [Unknown]
  - Trismus [Unknown]
  - Fall [Unknown]
  - Loss of consciousness [Unknown]
  - Syncope [Unknown]
  - Somnolence [Unknown]
  - Fatigue [Unknown]
  - Hyperhidrosis [Unknown]
